FAERS Safety Report 9334046 (Version 1)
Quarter: 2013Q2

REPORT INFORMATION
  Report Type: Spontaneous
  Country: RO (occurrence: RO)
  Receive Date: 20130606
  Receipt Date: 20130606
  Transmission Date: 20140414
  Serious: Yes (Life-Threatening, Hospitalization, Other)
  Sender: FDA-Public Use
  Company Number: RO-ABBOTT-13P-135-1099259-00

PATIENT
  Age: 64 Year
  Sex: Male
  Weight: 85 kg

DRUGS (3)
  1. HUMIRA [Suspect]
     Indication: PSORIASIS
     Route: 058
     Dates: end: 20130502
  2. NEBILET [Concomitant]
     Indication: HYPERTENSION
     Route: 048
  3. PREDUCTAL MR [Concomitant]
     Indication: HYPERTENSION
     Route: 048

REACTIONS (1)
  - Cerebellar haematoma [Recovering/Resolving]
